FAERS Safety Report 24603192 (Version 1)
Quarter: 2024Q4

REPORT INFORMATION
  Report Type: Spontaneous
  Country: US (occurrence: None)
  Receive Date: 20241108
  Receipt Date: 20241108
  Transmission Date: 20250115
  Serious: Yes (Other)
  Sender: Public
  Company Number: None

PATIENT
  Age: 61 Year
  Sex: Male

DRUGS (1)
  1. SKYRIZI [Suspect]
     Active Substance: RISANKIZUMAB-RZAA
     Dosage: DIRECTIONS: INJECT 1 PEN UNDER THE SKIN ON DAY 1 THEN INJECT 1 PEN UNDER THE SKIN 4 WEEKS LATER UTD
     Route: 058
     Dates: start: 20240104

REACTIONS (2)
  - Hepatic cancer [None]
  - Breast cancer [None]
